FAERS Safety Report 5222000-4 (Version None)
Quarter: 2007Q1

REPORT INFORMATION
  Report Type: 
  Country: None (occurrence: None)
  Receive Date: 20070129
  Receipt Date: 20060314
  Transmission Date: 20070707
  Serious: No
  Sender: FDA-Public Use
  Company Number: US-GLAXOSMITHKLINE-A0597521A

PATIENT
  Age: 56 Year
  Sex: Female

DRUGS (6)
  1. WELLBUTRIN [Suspect]
     Indication: DEPRESSION
     Dosage: 75MG PER DAY
     Route: 048
     Dates: start: 20051001, end: 20060201
  2. AMBIEN [Concomitant]
  3. SYNTHROID [Concomitant]
  4. B12 [Concomitant]
  5. MULTI-VITAMIN [Concomitant]
  6. VITAMIN B C COMPLEX [Concomitant]

REACTIONS (7)
  - CHEST DISCOMFORT [None]
  - DYSPEPSIA [None]
  - DYSPNOEA EXERTIONAL [None]
  - HEART RATE INCREASED [None]
  - INSOMNIA [None]
  - STAPHYLOCOCCAL INFECTION [None]
  - TINNITUS [None]
